FAERS Safety Report 15051416 (Version 1)
Quarter: 2018Q2

REPORT INFORMATION
  Report Type: Report from Study
  Country: JP (occurrence: JP)
  Receive Date: 20180622
  Receipt Date: 20180622
  Transmission Date: 20180711
  Serious: Yes (Hospitalization, Other)
  Sender: FDA-Public Use
  Company Number: JP-DSJP-DSJ-2018-111014

PATIENT

DRUGS (19)
  1. FEBURIC [Concomitant]
     Active Substance: FEBUXOSTAT
     Dosage: 10MG/DAY
     Route: 048
  2. TAKECAB [Concomitant]
     Active Substance: VONOPRAZAN FUMURATE
     Dosage: 10MG/DAY
     Route: 048
     Dates: start: 20170524
  3. PARIET [Concomitant]
     Active Substance: RABEPRAZOLE SODIUM
     Dosage: 10MG/DAY
     Route: 048
     Dates: end: 20170522
  4. TRAZENTA [Concomitant]
     Active Substance: LINAGLIPTIN
     Dosage: 5MG/DAY
     Route: 048
  5. PREMINENT [Concomitant]
     Active Substance: HYDROCHLOROTHIAZIDE\LOSARTAN POTASSIUM
     Dosage: 62.5MG/COMPOUNDING AGENT/DAY
     Route: 048
     Dates: start: 20170127, end: 20170713
  6. LOSARTAN K [Concomitant]
     Active Substance: LOSARTAN POTASSIUM
     Dosage: 100MG/DAY
     Route: 048
     Dates: start: 20171102
  7. GLUCOSE OTSUKA [Concomitant]
     Dosage: 20ML/DAY
     Route: 042
     Dates: start: 20171228, end: 20171228
  8. BAYASPIRIN [Concomitant]
     Active Substance: ASPIRIN
     Dosage: 100MG/DAY
     Route: 048
     Dates: end: 20170516
  9. BAYASPIRIN [Concomitant]
     Active Substance: ASPIRIN
     Dosage: 100MG/DAY
     Route: 048
     Dates: start: 20170615
  10. EDOXABAN [Suspect]
     Active Substance: EDOXABAN TOSYLATE
     Indication: ATRIAL FIBRILLATION
     Dosage: 30 MG, QD
     Route: 048
     Dates: start: 20170127
  11. HEPARIN SODIUM N [Concomitant]
     Active Substance: HEPARIN SODIUM
     Dosage: 10000IU/DAY
     Route: 042
     Dates: start: 20170523, end: 20170524
  12. MOHRUS [Concomitant]
     Active Substance: KETOPROFEN
     Dosage: 80MG/DAY
     Route: 050
  13. LOSARTAN K [Concomitant]
     Active Substance: LOSARTAN POTASSIUM
     Dosage: 50MG/DAY
     Route: 048
     Dates: start: 20170714, end: 20171101
  14. ARCRANE [Concomitant]
     Dosage: 90ML/DAY
     Route: 048
     Dates: start: 20170524, end: 20170531
  15. CYANOCOBALAMIN. [Concomitant]
     Active Substance: CYANOCOBALAMIN
     Dosage: 1 DROP/DAY
     Route: 047
     Dates: start: 20170829
  16. FESIN                              /00023550/ [Concomitant]
     Active Substance: IRON SUCROSE
     Dosage: 80MG/DAY
     Route: 042
     Dates: start: 20171228, end: 20171228
  17. ELIQUIS [Concomitant]
     Active Substance: APIXABAN
     Dosage: 5MG/DAY
     Route: 048
     Dates: end: 20170126
  18. NU-LOTAN [Concomitant]
     Active Substance: LOSARTAN POTASSIUM
     Dosage: 50MG/DAY
     Route: 048
     Dates: end: 20170126
  19. REBAMIPIDE [Concomitant]
     Active Substance: REBAMIPIDE
     Dosage: 300MG/DAY
     Route: 048
     Dates: start: 20170524

REACTIONS (3)
  - Occult blood [Not Recovered/Not Resolved]
  - Gastric adenoma [Recovered/Resolved]
  - Nephrogenic anaemia [Not Recovered/Not Resolved]

NARRATIVE: CASE EVENT DATE: 20170208
